FAERS Safety Report 21627262 (Version 1)
Quarter: 2022Q4

REPORT INFORMATION
  Report Type: Spontaneous
  Country: US (occurrence: None)
  Receive Date: 20221121
  Receipt Date: 20221121
  Transmission Date: 20230113
  Serious: No
  Sender: FDA-Public Use
  Company Number: None

PATIENT
  Age: 79 Year
  Sex: Female
  Weight: 54.43 kg

DRUGS (11)
  1. IBRANCE [Suspect]
     Active Substance: PALBOCICLIB
     Indication: Breast cancer
     Dosage: OTHER FREQUENCY : 21D ON 7D OFF;?
     Route: 048
     Dates: start: 202207
  2. ARIMIDEX [Concomitant]
     Active Substance: ANASTROZOLE
  3. CALCIUM [Concomitant]
  4. VITAMIN D3 [Concomitant]
     Active Substance: CHOLECALCIFEROL
  5. IBUPROFEN [Concomitant]
     Active Substance: IBUPROFEN
  6. METHOTREXATE [Concomitant]
     Active Substance: METHOTREXATE
  7. VITAMINS [Concomitant]
     Active Substance: VITAMINS
  8. ORENCIA [Concomitant]
     Active Substance: ABATACEPT
  9. PROLIA [Concomitant]
     Active Substance: DENOSUMAB
  10. HERBALS\TURMERIC [Concomitant]
     Active Substance: HERBALS\TURMERIC
  11. VITAMIN C [Concomitant]
     Active Substance: ASCORBIC ACID

REACTIONS (1)
  - Malignant neoplasm progression [None]
